FAERS Safety Report 11782631 (Version 2)
Quarter: 2015Q4

REPORT INFORMATION
  Report Type: Spontaneous
  Country: US (occurrence: US)
  Receive Date: 20151127
  Receipt Date: 20151207
  Transmission Date: 20160305
  Serious: Yes (Other)
  Sender: FDA-Public Use
  Company Number: US-DRREDDYS-USA/USA/15/0054322

PATIENT
  Age: 34 Year
  Sex: Female

DRUGS (1)
  1. ZENATANE [Suspect]
     Active Substance: ISOTRETINOIN
     Indication: ACNE CYSTIC
     Route: 065
     Dates: start: 20150721

REACTIONS (2)
  - Mood altered [Unknown]
  - Depression [Unknown]

NARRATIVE: CASE EVENT DATE: 20151123
